FAERS Safety Report 21643027 (Version 2)
Quarter: 2023Q1

REPORT INFORMATION
  Report Type: Report from Study
  Country: US (occurrence: US)
  Receive Date: 20221125
  Receipt Date: 20230314
  Transmission Date: 20230417
  Serious: No
  Sender: FDA-Public Use
  Company Number: US-ABBVIE-4173499

PATIENT
  Sex: Female

DRUGS (1)
  1. RINVOQ [Suspect]
     Active Substance: UPADACITINIB
     Indication: Crohn^s disease
     Route: 048
     Dates: start: 202207, end: 202209

REACTIONS (6)
  - Off label use [Unknown]
  - Mood altered [Recovered/Resolved]
  - Headache [Recovered/Resolved]
  - Anxiety [Unknown]
  - Malaise [Unknown]
  - Crohn^s disease [Unknown]
